FAERS Safety Report 6161185-2 (Version None)
Quarter: 2009Q2

REPORT INFORMATION
  Report Type: 
  Country: None (occurrence: None)
  Receive Date: 20090421
  Receipt Date: 20090416
  Transmission Date: 20091009
  Serious: Yes (Other)
  Sender: FDA-Public Use
  Company Number: JP-JNJFOC-20090401108

PATIENT
  Age: 18 Year
  Sex: Male

DRUGS (5)
  1. RISPERDAL [Suspect]
     Route: 048
  2. RISPERDAL [Suspect]
     Indication: DRUG USE FOR UNKNOWN INDICATION
     Route: 048
  3. ANTIPSYCHOTIC DRUGS [Suspect]
     Indication: DRUG USE FOR UNKNOWN INDICATION
     Route: 065
  4. PAXIL [Concomitant]
     Route: 048
  5. SILECE [Concomitant]
     Route: 065

REACTIONS (2)
  - ANXIETY [None]
  - VISUAL FIELD DEFECT [None]
